FAERS Safety Report 18318470 (Version 2)
Quarter: 2020Q3

REPORT INFORMATION
  Report Type: Spontaneous
  Country: DE (occurrence: DE)
  Receive Date: 20200928
  Receipt Date: 20200930
  Transmission Date: 20201103
  Serious: Yes (Hospitalization)
  Sender: FDA-Public Use
  Company Number: DE-MYLANLABS-2020M1082182

PATIENT
  Age: 73 Year
  Sex: Male

DRUGS (16)
  1. LORAZEPAM. [Concomitant]
     Active Substance: LORAZEPAM
     Dosage: 0.5 MILLIGRAM (0.5 MG, 0.5?0?1?0 )
  2. METAMIZOL                          /06276701/ [Concomitant]
     Active Substance: METAMIZOLE
     Dosage: 500 MILLIGRAM, TID (500 MG, 1?1?1?0)
     Route: 048
  3. ATORVASTATIN [Concomitant]
     Active Substance: ATORVASTATIN
     Dosage: 80 MILLIGRAM, QD (80 MG, 0?0?1?0 )
  4. PLASTULEN [Concomitant]
     Dosage: 55 MILLIGRAM, QD
  5. QUETIAPIN [Concomitant]
     Active Substance: QUETIAPINE
     Dosage: 100 MILLIGRAM, QD (100 MG, 0?0?1?0)
     Route: 048
  6. RIVASTIGMIN                        /01383201/ [Concomitant]
     Active Substance: RIVASTIGMINE
     Dosage: 0.5 MILLIGRAM (0.5 MG / TAG, 1X, PFLASTER TRANSDERMAL)
     Route: 062
  7. HUMALOG MIX [Concomitant]
     Active Substance: INSULIN LISPRO
     Dosage: 1|1 IE, 20?0?22?0
     Route: 058
  8. GABAPENTIN. [Concomitant]
     Active Substance: GABAPENTIN
     Dosage: 300 MILLIGRAM (300 MG, 1?1?2?0)
  9. SITAGLIPTIN [Concomitant]
     Active Substance: SITAGLIPTIN
     Dosage: 50 MILLIGRAM, QD (50 MG, 1?0?0?0 )
     Route: 048
  10. TORASEMIDE [Suspect]
     Active Substance: TORSEMIDE
     Indication: PRODUCT USED FOR UNKNOWN INDICATION
     Dosage: 5 MILLIGRAM (5 MG, 1?0?0?0)
  11. ACETYLSALICYLIC ACID [Concomitant]
     Active Substance: ASPIRIN
     Dosage: 100 MILLIGRAM, QD
  12. RAMIPRIL. [Concomitant]
     Active Substance: RAMIPRIL
     Dosage: 5 MILLIGRAM (5 MG, 1?0?0.5?0)
     Route: 048
  13. CLEXANE [Concomitant]
     Active Substance: ENOXAPARIN SODIUM
     Dosage: 40 MILLIGRAM, QD (40 MG, 0?0?1?0)
  14. TRAZODON [Concomitant]
     Active Substance: TRAZODONE HYDROCHLORIDE
     Dosage: 100 MILLIGRAM (100 MG, 0.25?0?0.75?0)
  15. LORAZEPAM. [Concomitant]
     Active Substance: LORAZEPAM
     Dosage: 1 MILLIGRAM (1 MG, BEI BEDARF )
  16. PANTOPRAZOL                        /01263201/ [Concomitant]
     Active Substance: PANTOPRAZOLE
     Dosage: 40 MILLIGRAM, QD (40 MG, 1?0?0?0)

REACTIONS (6)
  - Sepsis [Unknown]
  - Pyrexia [Unknown]
  - Dehydration [Unknown]
  - Depressed level of consciousness [Unknown]
  - General physical health deterioration [Unknown]
  - Condition aggravated [Unknown]
